FAERS Safety Report 11289638 (Version 1)
Quarter: 2015Q3

REPORT INFORMATION
  Report Type: Spontaneous
  Country: PH (occurrence: PH)
  Receive Date: 20150721
  Receipt Date: 20150721
  Transmission Date: 20151125
  Serious: Yes (Other)
  Sender: FDA-Public Use
  Company Number: PH-BRISTOL-MYERS SQUIBB COMPANY-BMS-2015-047659

PATIENT
  Sex: Female

DRUGS (6)
  1. LITHIUM CARBONATE. [Suspect]
     Active Substance: LITHIUM CARBONATE
     Indication: BIPOLAR DISORDER
     Dosage: 450 MG, QD
     Route: 065
  2. CLUSIVOL /00266401/ [Suspect]
     Active Substance: VITAMINS
     Indication: BIPOLAR DISORDER
     Dosage: 1 DF, QD
     Route: 065
  3. CLUSIVOL                           /00266401/ [Suspect]
     Active Substance: VITAMINS
     Indication: MENTAL RETARDATION
  4. ABILIFY [Suspect]
     Active Substance: ARIPIPRAZOLE
     Indication: MENTAL RETARDATION
  5. ABILIFY [Suspect]
     Active Substance: ARIPIPRAZOLE
     Indication: BIPOLAR DISORDER
     Dosage: 15 MG, QD
     Route: 060
  6. LITHIUM CARBONATE. [Suspect]
     Active Substance: LITHIUM CARBONATE
     Indication: MENTAL RETARDATION

REACTIONS (7)
  - Aggression [None]
  - Deafness [Unknown]
  - Anger [None]
  - Abnormal behaviour [None]
  - Dyspnoea [Unknown]
  - Drug ineffective [Unknown]
  - Skin discolouration [Unknown]
